FAERS Safety Report 5166874-4 (Version None)
Quarter: 2006Q4

REPORT INFORMATION
  Report Type: 
  Country: None (occurrence: None)
  Receive Date: 20061207
  Receipt Date: 20061128
  Transmission Date: 20070319
  Serious: Yes (Other)
  Sender: FDA-Public Use
  Company Number: US-ELI_LILLY_AND_COMPANY-US200611005017

PATIENT
  Sex: Male

DRUGS (10)
  1. HUMULIN 70/30 [Suspect]
     Dosage: 30 U, 2/D
     Dates: start: 19990101, end: 20030101
  2. HUMULIN N [Suspect]
     Dosage: UNK, UNKNOWN
     Dates: start: 19810101, end: 19990101
  3. HUMULIN R [Suspect]
     Indication: BLOOD GLUCOSE INCREASED
     Dosage: UNK, UNKNOWN
     Dates: start: 20060101
  4. HUMULIN R [Suspect]
     Dosage: UNK, UNKNOWN
     Dates: start: 19810101, end: 19990101
  5. HUMULIN R [Suspect]
     Dosage: 4 U, UNKNOWN
     Dates: start: 20061128, end: 20061128
  6. HUMALOG [Suspect]
     Indication: BLOOD GLUCOSE INCREASED
     Dosage: UNK, UNKNOWN
     Dates: start: 20050501, end: 20060201
  7. LANTUS [Concomitant]
     Dosage: UNK, UNKNOWN
  8. LANTUS [Concomitant]
     Dosage: UNK, UNKNOWN
     Dates: start: 20030101
  9. NOVOLIN R [Concomitant]
     Dosage: UNK, UNKNOWN
     Dates: start: 20060101, end: 20060101
  10. HUMULIN U [Suspect]
     Dosage: UNK, UNKNOWN
     Dates: start: 19810101, end: 19990101

REACTIONS (9)
  - APHASIA [None]
  - BLOOD GLUCOSE DECREASED [None]
  - BLOOD GLUCOSE INCREASED [None]
  - DEPRESSED LEVEL OF CONSCIOUSNESS [None]
  - FEELING ABNORMAL [None]
  - HYPOKINESIA [None]
  - MUSCLE SPASMS [None]
  - PARALYSIS [None]
  - THERAPEUTIC RESPONSE DECREASED [None]
